FAERS Safety Report 9645416 (Version 2)
Quarter: 2013Q4

REPORT INFORMATION
  Report Type: Spontaneous
  Country: FR (occurrence: FR)
  Receive Date: 20131025
  Receipt Date: 20131025
  Transmission Date: 20140711
  Serious: Yes (Death, Life-Threatening)
  Sender: FDA-Public Use
  Company Number: FR-B.I. PHARMACEUTICALS,INC./RIDGEFIELD-2013-FF-02501FF

PATIENT
  Age: 76 Year
  Sex: Male

DRUGS (1)
  1. PRADAXA [Suspect]
     Indication: ARRHYTHMIA
     Dosage: 300 MG
     Route: 048
     Dates: start: 20130924, end: 20130926

REACTIONS (2)
  - Gastrointestinal haemorrhage [Fatal]
  - Haematoma [Fatal]
